FAERS Safety Report 18579813 (Version 1)
Quarter: 2020Q4

REPORT INFORMATION
  Report Type: Report from Study
  Country: US (occurrence: US)
  Receive Date: 20201204
  Receipt Date: 20201204
  Transmission Date: 20210114
  Serious: Yes (Other)
  Sender: FDA-Public Use
  Company Number: US-PFIZER INC-2020469546

PATIENT
  Age: 52 Year
  Sex: Male

DRUGS (5)
  1. CYCLOPHOSPHAMIDE. [Suspect]
     Active Substance: CYCLOPHOSPHAMIDE
     Indication: CHRONIC EOSINOPHILIC LEUKAEMIA
     Dosage: UNK, CYCLIC
  2. PEG/L-ASPARAGINASE [Suspect]
     Active Substance: PEGASPARGASE
     Indication: CHRONIC EOSINOPHILIC LEUKAEMIA
     Dosage: UNK UNK, CYCLIC
  3. DOXORUBICIN HCL [Suspect]
     Active Substance: DOXORUBICIN HYDROCHLORIDE
     Indication: CHRONIC EOSINOPHILIC LEUKAEMIA
     Dosage: UNK UNK, CYCLIC
  4. DEXAMETHASONE. [Suspect]
     Active Substance: DEXAMETHASONE
     Indication: CHRONIC EOSINOPHILIC LEUKAEMIA
     Dosage: UNK, CYCLIC
  5. VINCRISTINE SULFATE. [Suspect]
     Active Substance: VINCRISTINE SULFATE
     Indication: CHRONIC EOSINOPHILIC LEUKAEMIA
     Dosage: UNK, CYCLIC

REACTIONS (1)
  - Neurotoxicity [Recovered/Resolved]
